FAERS Safety Report 5414504-6 (Version None)
Quarter: 2007Q3

REPORT INFORMATION
  Report Type: 
  Country: None (occurrence: None)
  Receive Date: 20070731
  Receipt Date: 20070417
  Transmission Date: 20080115
  Serious: No
  Sender: FDA-Public Use
  Company Number: 2006PV027091

PATIENT
  Age: 62 Year
  Sex: Female
  Weight: 95.3 kg

DRUGS (7)
  1. EXENATIDE [Suspect]
     Indication: TYPE 2 DIABETES MELLITUS
     Dosage: 10 UG, 2/D, SQ  5 UG, 2/D, SQ  5 UG, 2/D, SQ  10 UG, 2/D, SQ  5 UG, 2/D, SQ
     Route: 058
     Dates: start: 20060901, end: 20061001
  2. EXENATIDE [Suspect]
     Indication: TYPE 2 DIABETES MELLITUS
     Dosage: 10 UG, 2/D, SQ  5 UG, 2/D, SQ  5 UG, 2/D, SQ  10 UG, 2/D, SQ  5 UG, 2/D, SQ
     Route: 058
     Dates: start: 20061001, end: 20061001
  3. EXENATIDE [Suspect]
     Indication: TYPE 2 DIABETES MELLITUS
     Dosage: 10 UG, 2/D, SQ  5 UG, 2/D, SQ  5 UG, 2/D, SQ  10 UG, 2/D, SQ  5 UG, 2/D, SQ
     Route: 058
     Dates: start: 20061101, end: 20061208
  4. EXENATIDE [Suspect]
     Indication: TYPE 2 DIABETES MELLITUS
     Dosage: 10 UG, 2/D, SQ  5 UG, 2/D, SQ  5 UG, 2/D, SQ  10 UG, 2/D, SQ  5 UG, 2/D, SQ
     Route: 058
     Dates: start: 20061209, end: 20061217
  5. EXENATIDE [Suspect]
     Indication: TYPE 2 DIABETES MELLITUS
     Dosage: 10 UG, 2/D, SQ  5 UG, 2/D, SQ  5 UG, 2/D, SQ  10 UG, 2/D, SQ  5 UG, 2/D, SQ
     Route: 058
     Dates: start: 20061001
  6. EXENATIDE                    (EXENATIDE) PEN, DISPOSABLE [Suspect]
  7. METFORMIN [Concomitant]

REACTIONS (5)
  - DIZZINESS [None]
  - FATIGUE [None]
  - NAUSEA [None]
  - VOMITING [None]
  - WEIGHT DECREASED [None]
